FAERS Safety Report 10557106 (Version 2)
Quarter: 2014Q4

REPORT INFORMATION
  Report Type: Spontaneous
  Country: US (occurrence: US)
  Receive Date: 20141031
  Receipt Date: 20141121
  Transmission Date: 20150529
  Serious: Yes (Other)
  Sender: FDA-Public Use
  Company Number: US-SA-2014SA148626

PATIENT
  Age: 81 Year
  Sex: Female

DRUGS (6)
  1. TIKOSYN [Suspect]
     Active Substance: DOFETILIDE
     Indication: HEART RATE IRREGULAR
     Route: 065
     Dates: start: 201404
  2. ASPIRIN. [Concomitant]
     Active Substance: ASPIRIN
     Route: 065
  3. NASACORT [Suspect]
     Active Substance: TRIAMCINOLONE ACETONIDE
     Indication: NASOPHARYNGITIS
     Route: 065
     Dates: start: 20141024
  4. NIASPAN [Concomitant]
     Active Substance: NIACIN
  5. SYNTHROID [Concomitant]
     Active Substance: LEVOTHYROXINE SODIUM
     Dosage: TAKEN FROM: 10 + YEARS AGO
  6. VITAMIN PREPARATION COMPOUND [Concomitant]
     Active Substance: VITAMINS

REACTIONS (2)
  - Atrial fibrillation [Recovered/Resolved]
  - Insomnia [Unknown]

NARRATIVE: CASE EVENT DATE: 20141017
